FAERS Safety Report 4747064-3 (Version None)
Quarter: 2005Q3

REPORT INFORMATION
  Report Type: 
  Country: None (occurrence: None)
  Receive Date: 20050817
  Receipt Date: 20050318
  Transmission Date: 20060218
  Serious: Yes (Death, Life-Threatening, Hospitalization, Disabling)
  Sender: FDA-Public Use
  Company Number: BR-GILEAD-2005-0008139

PATIENT
  Sex: Male

DRUGS (4)
  1. HEPSERA [Suspect]
     Indication: HEPATITIS B
     Route: 048
     Dates: start: 20041201, end: 20050305
  2. PROPRANOLOL HYDROCHLORIDE [Concomitant]
  3. SPIRONOLACTONE [Concomitant]
  4. OMEPRAZOLE [Concomitant]

REACTIONS (6)
  - BILE DUCT STONE [None]
  - BILIARY DILATATION [None]
  - CHOLELITHIASIS [None]
  - HAEMODIALYSIS [None]
  - PANCREATITIS [None]
  - RENAL FAILURE [None]
